FAERS Safety Report 7648511-X (Version None)
Quarter: 2011Q3

REPORT INFORMATION
  Report Type: 
  Country: None (occurrence: None)
  Receive Date: 20110801
  Receipt Date: 20110727
  Transmission Date: 20111222
  Serious: Yes (Hospitalization, Other)
  Sender: FDA-Public Use
  Company Number: US-B.I. PHARMACEUTICALS,INC./RIDGEFIELD-2011-BP-18614BP

PATIENT
  Age: 82 Year
  Sex: Male

DRUGS (9)
  1. MULTI-VITAMIN [Concomitant]
  2. SOTALOL HCL [Concomitant]
     Dosage: 80 MG
  3. ASPIRIN [Concomitant]
  4. ATENOLOL [Concomitant]
     Dosage: 50 MG
  5. DICYCLOMINE [Concomitant]
  6. SAW PALMETTO [Concomitant]
  7. CITRUCEL [Concomitant]
  8. PRADAXA [Suspect]
     Indication: ATRIAL FIBRILLATION
     Dosage: 300 MG
     Route: 048
     Dates: end: 20110712
  9. PEPCID AC [Concomitant]

REACTIONS (4)
  - CONVULSION [None]
  - CONFUSIONAL STATE [None]
  - MENTAL STATUS CHANGES [None]
  - SUBDURAL HAEMATOMA [None]
